FAERS Safety Report 18420031 (Version 5)
Quarter: 2025Q3

REPORT INFORMATION
  Report Type: Spontaneous
  Country: EU (occurrence: EU)
  Receive Date: 20201023
  Receipt Date: 20250714
  Transmission Date: 20251020
  Serious: Yes (Death, Other)
  Sender: ASTELLAS
  Company Number: EU-ASTELLAS-2020US033945

PATIENT
  Age: 52 Year
  Sex: Male

DRUGS (12)
  1. CRESEMBA [Suspect]
     Active Substance: ISAVUCONAZONIUM SULFATE
     Indication: Bronchopulmonary aspergillosis
     Dosage: 200 MG, EVERY 8 HOURS FOR 48 HOURS; CONCENTRATE FOR SOLUTION FOR INFUSION
     Route: 042
     Dates: start: 20200410, end: 20200411
  2. CRESEMBA [Suspect]
     Active Substance: ISAVUCONAZONIUM SULFATE
     Dosage: 200 MG, ONCE DAILY; CONCENTRATE FOR SOLUTION FOR INFUSION
     Route: 042
     Dates: start: 20200412, end: 20200416
  3. VORICONAZOLE [Suspect]
     Active Substance: VORICONAZOLE
     Indication: Aspergillus infection
     Dosage: 400 MG, EVERY 12 HOURS; POWDER FOR CONCENTRATE FOR SOLUTION FOR INJECTION/INFUSION
     Route: 042
     Dates: start: 20200405, end: 20200409
  4. TOCILIZUMAB [Concomitant]
     Active Substance: TOCILIZUMAB
     Indication: Respiratory distress
     Dosage: 700 MG, ONCE DAILY
     Route: 042
     Dates: start: 20200316, end: 20200316
  5. TOCILIZUMAB [Concomitant]
     Active Substance: TOCILIZUMAB
     Indication: COVID-19
     Dosage: 700 MG, ONCE DAILY
     Route: 042
     Dates: start: 20200317, end: 20200317
  6. PREDNISONE [Concomitant]
     Active Substance: PREDNISONE
     Indication: Product used for unknown indication
     Route: 065
  7. CEFTRIAXONE [Concomitant]
     Active Substance: CEFTRIAXONE
     Indication: Product used for unknown indication
     Route: 065
  8. PIPERACILLIN SODIUM\TAZOBACTAM SODIUM [Concomitant]
     Active Substance: PIPERACILLIN SODIUM\TAZOBACTAM SODIUM
     Indication: Product used for unknown indication
     Route: 065
  9. LINEZOLID [Concomitant]
     Active Substance: LINEZOLID
     Indication: Product used for unknown indication
     Route: 065
  10. LOPINAVIR\RITONAVIR [Concomitant]
     Active Substance: LOPINAVIR\RITONAVIR
     Indication: COVID-19
     Route: 065
  11. HYDROXYCHLOROQUINE [Concomitant]
     Active Substance: HYDROXYCHLOROQUINE
     Indication: COVID-19
     Route: 065
  12. INTERFERON BETA-1B [Concomitant]
     Active Substance: INTERFERON BETA-1B
     Indication: COVID-19
     Route: 065

REACTIONS (2)
  - Septic shock [Fatal]
  - Respiratory failure [Fatal]

NARRATIVE: CASE EVENT DATE: 20200417
